FAERS Safety Report 6580006-7 (Version None)
Quarter: 2010Q1

REPORT INFORMATION
  Report Type: 
  Country: None (occurrence: None)
  Receive Date: 20100212
  Receipt Date: 20100204
  Transmission Date: 20100710
  Serious: Yes (Other)
  Sender: FDA-Public Use
  Company Number: US-ABBOTT-09P-163-0611006-00

PATIENT
  Age: 30 Year
  Sex: Female

DRUGS (5)
  1. KALETRA [Suspect]
     Indication: ANTIVIRAL TREATMENT
     Route: 048
     Dates: start: 20090901, end: 20090908
  2. NORVIR [Suspect]
     Indication: ANTIVIRAL TREATMENT
     Route: 048
     Dates: start: 20090908
  3. COMBIVIR [Suspect]
     Indication: ANTIVIRAL TREATMENT
     Route: 048
     Dates: start: 20090901, end: 20090908
  4. REYATAZ [Suspect]
     Indication: ANTIVIRAL TREATMENT
     Route: 048
     Dates: start: 20090908
  5. TRUVADA [Suspect]
     Indication: ANTIVIRAL TREATMENT
     Route: 048
     Dates: start: 20090908

REACTIONS (6)
  - GESTATIONAL DIABETES [None]
  - HYPERTENSION [None]
  - NEPHROTIC SYNDROME [None]
  - PLACENTAL INSUFFICIENCY [None]
  - PULMONARY OEDEMA [None]
  - STILLBIRTH [None]
